FAERS Safety Report 12378314 (Version 2)
Quarter: 2016Q2

REPORT INFORMATION
  Report Type: Spontaneous
  Country: US (occurrence: US)
  Receive Date: 20160517
  Receipt Date: 20160525
  Transmission Date: 20160815
  Serious: Yes (Hospitalization, Other)
  Sender: FDA-Public Use
  Company Number: US-PFIZER INC-2016260730

PATIENT
  Age: 46 Year
  Sex: Female
  Weight: 51.25 kg

DRUGS (2)
  1. TESSALON [Suspect]
     Active Substance: BENZONATATE
     Indication: COUGH
     Dosage: 100 MG, 1X/DAY
     Route: 048
     Dates: start: 20160425, end: 20160425
  2. TESSALON [Suspect]
     Active Substance: BENZONATATE
     Indication: BRONCHITIS CHRONIC

REACTIONS (3)
  - Road traffic accident [Unknown]
  - Aneurysm [Unknown]
  - Clonic convulsion [Recovered/Resolved]

NARRATIVE: CASE EVENT DATE: 20160425
